FAERS Safety Report 10031913 (Version 2)
Quarter: 2014Q2

REPORT INFORMATION
  Report Type: Spontaneous
  Country: HU (occurrence: HU)
  Receive Date: 20140324
  Receipt Date: 20140512
  Transmission Date: 20141212
  Serious: Yes (Other)
  Sender: FDA-Public Use
  Company Number: HU-PFIZER INC-2014080047

PATIENT
  Age: 59 Year
  Sex: Male

DRUGS (4)
  1. CHAMPIX [Suspect]
     Indication: SMOKING CESSATION THERAPY
     Dosage: 1 MG, 2X/DAY
     Route: 048
     Dates: start: 201402, end: 201403
  2. BETALOC [Concomitant]
     Indication: HYPERTENSION
     Dosage: FOR YEARS
  3. NORTIVAN [Concomitant]
     Indication: HYPERTENSION
     Dosage: FOR  YEARS
  4. OLICARD [Concomitant]
     Indication: HYPERTENSION
     Dosage: FOR YEARS

REACTIONS (4)
  - Suicidal ideation [Recovering/Resolving]
  - Mental impairment [Recovering/Resolving]
  - Depression [Recovering/Resolving]
  - Impaired work ability [Recovering/Resolving]
